FAERS Safety Report 26139069 (Version 1)
Quarter: 2025Q4

REPORT INFORMATION
  Report Type: Spontaneous
  Country: US (occurrence: US)
  Receive Date: 20251210
  Receipt Date: 20251210
  Transmission Date: 20260117
  Serious: No
  Sender: ANI
  Company Number: US-ANIPHARMA-035494

PATIENT
  Sex: Male

DRUGS (3)
  1. VANCOMYCIN HYDROCHLORIDE [Suspect]
     Active Substance: VANCOMYCIN HYDROCHLORIDE
     Indication: Clostridium difficile infection
     Dosage: PILL, APPROXIMATELY ONE WEEK
     Dates: start: 202506
  2. FLAGYL [Concomitant]
     Active Substance: METRONIDAZOLE\METRONIDAZOLE HYDROCHLORIDE
     Indication: Clostridium difficile infection
     Dates: start: 20250910
  3. FLAGYL [Concomitant]
     Active Substance: METRONIDAZOLE\METRONIDAZOLE HYDROCHLORIDE
     Indication: Clostridium difficile infection
     Dates: start: 20250929

REACTIONS (5)
  - Muscle spasms [Unknown]
  - Abdominal discomfort [Unknown]
  - Diarrhoea [Unknown]
  - Upper respiratory tract infection [Unknown]
  - Drug ineffective [Unknown]
